FAERS Safety Report 12672878 (Version 1)
Quarter: 2016Q3

REPORT INFORMATION
  Report Type: Spontaneous
  Country: US (occurrence: US)
  Receive Date: 20160822
  Receipt Date: 20160822
  Transmission Date: 20161109
  Serious: No
  Sender: FDA-Public Use
  Company Number: US-JNJFOC-20160809025

PATIENT
  Sex: Female
  Weight: 59.88 kg

DRUGS (6)
  1. WOMENS ROGAINE UNSCENTED [Suspect]
     Active Substance: MINOXIDIL
     Indication: ALOPECIA
     Dosage: DOSE: 1/2 CAP
     Route: 061
     Dates: start: 201507
  2. BIOTIN [Concomitant]
     Active Substance: BIOTIN
     Indication: HAIR DISORDER
     Route: 065
  3. XARELTO [Concomitant]
     Active Substance: RIVAROXABAN
     Indication: CARDIAC DISORDER
     Dosage: SINCE 6 MONTHS
     Route: 065
     Dates: start: 201602
  4. FLECAINIDE [Concomitant]
     Active Substance: FLECAINIDE
     Indication: CARDIAC DISORDER
     Route: 065
  5. WOMENS ROGAINE UNSCENTED [Suspect]
     Active Substance: MINOXIDIL
     Route: 061
  6. VITAMIN B [Concomitant]
     Active Substance: VITAMIN B
     Indication: HAIR DISORDER
     Route: 065

REACTIONS (1)
  - Drug ineffective [Unknown]
